FAERS Safety Report 15807820 (Version 1)
Quarter: 2019Q1

REPORT INFORMATION
  Report Type: Spontaneous
  Country: IN (occurrence: IN)
  Receive Date: 20190110
  Receipt Date: 20190110
  Transmission Date: 20190417
  Serious: Yes (Other)
  Sender: FDA-Public Use
  Company Number: IN-PFIZER INC-2019012999

PATIENT
  Age: 6 Year
  Sex: Male
  Weight: 22 kg

DRUGS (9)
  1. CLOFAZIMINE [Suspect]
     Active Substance: CLOFAZIMINE
     Indication: PULMONARY TUBERCULOSIS
     Dosage: 375 MG, 1X/DAY
     Dates: start: 20180213
  2. CYCLOSERINE. [Suspect]
     Active Substance: CYCLOSERINE
     Indication: PULMONARY TUBERCULOSIS
     Dosage: 375 MG, 1X/DAY
     Dates: start: 20180213
  3. PERINORM [Concomitant]
     Dosage: UNK
     Dates: start: 20180213
  4. LINEZOLID. [Suspect]
     Active Substance: LINEZOLID
     Indication: PULMONARY TUBERCULOSIS
     Dosage: 200 MG, 2X/DAY
     Dates: start: 20180213, end: 20181127
  5. MOXIFLOXACIN. [Suspect]
     Active Substance: MOXIFLOXACIN
     Indication: PULMONARY TUBERCULOSIS
     Dosage: 250 MG, 1X/DAY
     Dates: start: 20180213
  6. PYRIDOXINE [Concomitant]
     Active Substance: PYRIDOXINE
     Indication: NEUROPATHY PERIPHERAL
  7. BEDAQUILINE [Suspect]
     Active Substance: BEDAQUILINE
     Indication: PULMONARY TUBERCULOSIS
     Dosage: 100 MG, 2X/WEEK
     Dates: start: 20180326
  8. DELAMANID [Suspect]
     Active Substance: DELAMANID
     Indication: PULMONARY TUBERCULOSIS
     Dosage: 50 MG, 2X/DAY
     Dates: start: 20180326
  9. PYRIDOXINE [Concomitant]
     Active Substance: PYRIDOXINE
     Indication: PROPHYLAXIS
     Dosage: UNK
     Dates: start: 20180213

REACTIONS (3)
  - Optic neuritis [Not Recovered/Not Resolved]
  - Visual impairment [Unknown]
  - Toxicity to various agents [Unknown]

NARRATIVE: CASE EVENT DATE: 201811
